FAERS Safety Report 8471870-5 (Version None)
Quarter: 2012Q2

REPORT INFORMATION
  Report Type: 
  Country: None (occurrence: None)
  Receive Date: 20120323
  Receipt Date: 20111027
  Transmission Date: 20120825
  Serious: Yes (Other)
  Sender: FDA-Public Use
  Company Number: 163-21880-11100275

PATIENT
  Age: 70 Year
  Sex: Female
  Weight: 63.6 kg

DRUGS (1)
  1. REVLIMID [Suspect]
     Indication: MULTIPLE MYELOMA
     Dosage: 10 MG, DAILY X DAYS 1-21, PO
     Route: 048
     Dates: start: 20100604

REACTIONS (1)
  - THROMBOSIS [None]
